FAERS Safety Report 4668516-0 (Version None)
Quarter: 2005Q2

REPORT INFORMATION
  Report Type: 
  Country: None (occurrence: None)
  Receive Date: 20050519
  Receipt Date: 20050513
  Transmission Date: 20051028
  Serious: Yes (Hospitalization, Other)
  Sender: FDA-Public Use
  Company Number: 2005-01660

PATIENT
  Age: 30 Year
  Sex: Female

DRUGS (6)
  1. TRAZODONE HCL [Suspect]
     Indication: BIPOLAR DISORDER
     Dosage: ORAL
     Route: 048
     Dates: start: 20010101, end: 20041001
  2. LEXAPRO [Suspect]
     Indication: DEPRESSION
     Dosage: 20 MG, DAILY, ORAL
     Route: 048
     Dates: start: 20040101
  3. LITHIUM CARBONATE [Suspect]
     Indication: BIPOLAR DISORDER
     Dosage: 600 MG, DAILY, ORAL
     Route: 048
     Dates: start: 20041001
  4. LAMICTAL ^GLAXO WELCOME^ [Suspect]
     Indication: BIPOLAR DISORDER
     Dosage: 50 MG, BID, ORAL
     Route: 048
  5. ARIPRAZOLE (APIRPRAZOLE) [Suspect]
     Indication: BIPOLAR DISORDER
     Dosage: 15 MG, DAILY, ORAL
     Route: 048
     Dates: start: 20041001
  6. SEROQUEL [Suspect]
     Indication: BIPOLAR DISORDER
     Dosage: ORAL
     Route: 048
     Dates: start: 20010101, end: 20041001

REACTIONS (9)
  - DEPRESSION [None]
  - DRUG INEFFECTIVE [None]
  - INTENTIONAL MISUSE [None]
  - MANIA [None]
  - MULTIPLE DRUG OVERDOSE [None]
  - OFF LABEL USE [None]
  - PERSONALITY CHANGE [None]
  - SUICIDE ATTEMPT [None]
  - WEIGHT INCREASED [None]
